FAERS Safety Report 13005092 (Version 3)
Quarter: 2018Q1

REPORT INFORMATION
  Report Type: Spontaneous
  Country: US (occurrence: US)
  Receive Date: 20161207
  Receipt Date: 20180314
  Transmission Date: 20180508
  Serious: No
  Sender: FDA-Public Use
  Company Number: US-PFIZER INC-2016565665

PATIENT
  Age: 66 Year
  Sex: Male
  Weight: 64 kg

DRUGS (2)
  1. ADVIL [Suspect]
     Active Substance: IBUPROFEN
     Indication: TEMPOROMANDIBULAR JOINT SYNDROME
     Dosage: 200 MG, 3X/DAY
     Route: 048
     Dates: start: 20161201, end: 201612
  2. ADVIL [Suspect]
     Active Substance: IBUPROFEN
     Indication: TEMPOROMANDIBULAR JOINT SYNDROME
     Dosage: 200 MG, 3X/DAY
     Route: 048

REACTIONS (4)
  - Dyspepsia [Unknown]
  - Abdominal discomfort [Recovered/Resolved]
  - Product packaging confusion [Unknown]
  - Wrong drug administered [Unknown]

NARRATIVE: CASE EVENT DATE: 20161201
